FAERS Safety Report 5598275-9 (Version None)
Quarter: 2008Q1

REPORT INFORMATION
  Report Type: 
  Country: None (occurrence: None)
  Receive Date: 20080117
  Receipt Date: 20080117
  Transmission Date: 20080703
  Serious: Yes (Other)
  Sender: FDA-Public Use
  Company Number: None

PATIENT
  Age: 11 Year
  Sex: Male
  Weight: 77.1115 kg

DRUGS (2)
  1. RITALIN [Suspect]
     Indication: ABNORMAL BEHAVIOUR
     Dosage: PO
     Route: 048
  2. ADDERALL SHIRE [Suspect]
     Indication: ABNORMAL BEHAVIOUR
     Dosage: PO
     Route: 048

REACTIONS (4)
  - AGGRESSION [None]
  - ANGER [None]
  - CRYING [None]
  - TYPE 1 DIABETES MELLITUS [None]
